FAERS Safety Report 5564507-6 (Version None)
Quarter: 2007Q4

REPORT INFORMATION
  Report Type: 
  Country: None (occurrence: None)
  Receive Date: 20071218
  Receipt Date: 20070814
  Transmission Date: 20080405
  Serious: Yes (Hospitalization)
  Sender: FDA-Public Use
  Company Number: IN-ELI_LILLY_AND_COMPANY-IN200701006175

PATIENT
  Sex: Male
  Weight: 65 kg

DRUGS (6)
  1. PEMETREXED [Suspect]
     Indication: SMALL CELL LUNG CANCER EXTENSIVE STAGE
     Dosage: 895 MG, ONCE IN 3 WEEKS
     Route: 042
     Dates: start: 20070115, end: 20070410
  2. CARBOPLATIN [Suspect]
     Indication: SMALL CELL LUNG CANCER EXTENSIVE STAGE
     Dosage: 792.5 MG, ONCE IN 3 WEEKS
     Route: 042
     Dates: start: 20070115
  3. CARBOPLATIN [Suspect]
     Dosage: 757 MG, ONCE IN 3 WEEKS
     Route: 042
     Dates: start: 20070205, end: 20070410
  4. FOLIC ACID [Concomitant]
     Indication: SUPPLEMENTATION THERAPY
     Dosage: 1000 UG, DAILY (1/D)
     Route: 048
     Dates: start: 20070108
  5. VITAMIN B-12 [Concomitant]
     Indication: SUPPLEMENTATION THERAPY
     Dosage: 1000 UG, ONCE IN NINE WEEKS
     Route: 030
     Dates: start: 20070108
  6. DEXAMETHASONE TAB [Concomitant]
     Indication: SUPPLEMENTATION THERAPY
     Dosage: 8 MG, 2/D FOR 3 DAYS ONCE IN 3 WEEKS
     Dates: start: 20070108

REACTIONS (2)
  - HAEMOPTYSIS [None]
  - HYDROPNEUMOTHORAX [None]
